FAERS Safety Report 8548676-1 (Version None)
Quarter: 2012Q2

REPORT INFORMATION
  Report Type: 
  Country: None (occurrence: None)
  Receive Date: 20120416
  Receipt Date: 20110517
  Transmission Date: 20120825
  Serious: Yes (Other)
  Sender: FDA-Public Use
  Company Number: PHHY2011US34578

PATIENT
  Age: 63 Year
  Sex: Female

DRUGS (4)
  1. DIOVAN [Suspect]
     Dosage: 160 MG,BID,ORAL
     Route: 048
     Dates: start: 20080101
  2. CLONIDINE [Concomitant]
  3. ASPIRIN [Concomitant]
  4. SPIRONOLACTONE [Concomitant]

REACTIONS (1)
  - ALOPECIA [None]
